FAERS Safety Report 6648021-2 (Version None)
Quarter: 2010Q1

REPORT INFORMATION
  Report Type: 
  Country: None (occurrence: None)
  Receive Date: 20100309
  Receipt Date: 20091119
  Transmission Date: 20100710
  Serious: Yes (Other)
  Sender: FDA-Public Use
  Company Number: 2009SP037417

PATIENT
  Age: 46 Year
  Sex: Female

DRUGS (5)
  1. SAPHRIS [Suspect]
     Indication: BIPOLAR DISORDER
     Dosage: 5 MG; BID; SL
  2. PAXIL [Concomitant]
  3. RESTORIL [Concomitant]
  4. TRILAFON [Concomitant]
  5. XANAX [Concomitant]

REACTIONS (2)
  - DYSTONIA [None]
  - TRISMUS [None]
